FAERS Safety Report 21167209 (Version 5)
Quarter: 2022Q3

REPORT INFORMATION
  Report Type: Report from Study
  Country: US (occurrence: US)
  Receive Date: 20220803
  Receipt Date: 20220823
  Transmission Date: 20221027
  Serious: Yes (Death, Life-Threatening, Hospitalization, Other)
  Sender: FDA-Public Use
  Company Number: US-BRISTOL-MYERS SQUIBB COMPANY-2022-068353

PATIENT
  Sex: Male

DRUGS (4)
  1. IPILIMUMAB [Suspect]
     Active Substance: IPILIMUMAB
     Indication: Myelodysplastic syndrome
     Route: 042
     Dates: start: 20220625
  2. IPILIMUMAB [Suspect]
     Active Substance: IPILIMUMAB
     Indication: Acute myeloid leukaemia
  3. NIVOLUMAB [Suspect]
     Active Substance: NIVOLUMAB
     Indication: Myelodysplastic syndrome
     Route: 042
     Dates: start: 20220625
  4. NIVOLUMAB [Suspect]
     Active Substance: NIVOLUMAB
     Indication: Acute myeloid leukaemia

REACTIONS (4)
  - Multiple organ dysfunction syndrome [Fatal]
  - Depressed level of consciousness [Unknown]
  - Non-cardiac chest pain [Recovered/Resolved]
  - Hypertension [Unknown]

NARRATIVE: CASE EVENT DATE: 20220628
